FAERS Safety Report 16416722 (Version 1)
Quarter: 2019Q2

REPORT INFORMATION
  Report Type: Spontaneous
  Country: CN (occurrence: CN)
  Receive Date: 20190611
  Receipt Date: 20190611
  Transmission Date: 20190711
  Serious: Yes (Other)
  Sender: FDA-Public Use
  Company Number: CN-GLAXOSMITHKLINE-CN2019104102

PATIENT
  Age: 32 Year
  Sex: Female
  Weight: 66 kg

DRUGS (1)
  1. DICLOFENAC SODIUM. [Suspect]
     Active Substance: DICLOFENAC SODIUM
     Indication: PYREXIA
     Dosage: 75 MG, QD
     Route: 048
     Dates: start: 20190510, end: 20190510

REACTIONS (1)
  - Hypothermia [Recovered/Resolved]

NARRATIVE: CASE EVENT DATE: 20190510
